FAERS Safety Report 23397973 (Version 1)
Quarter: 2024Q1

REPORT INFORMATION
  Report Type: Spontaneous
  Country: CN (occurrence: None)
  Receive Date: 20240112
  Receipt Date: 20240112
  Transmission Date: 20240409
  Serious: Yes (Hospitalization, Other)
  Sender: FDA-Public Use
  Company Number: 2024A004822

PATIENT
  Age: 29277 Day
  Sex: Female
  Weight: 69 kg

DRUGS (6)
  1. DAPAGLIFLOZIN [Suspect]
     Active Substance: DAPAGLIFLOZIN
     Indication: Type 2 diabetes mellitus
     Route: 048
     Dates: start: 20201029, end: 20201209
  2. SITAGLIPTIN PHOSPHATE [Suspect]
     Active Substance: SITAGLIPTIN PHOSPHATE
     Indication: Diabetes mellitus
     Route: 048
     Dates: start: 20201029, end: 20201209
  3. LESCOL [Concomitant]
     Active Substance: FLUVASTATIN SODIUM
     Indication: Arteriosclerosis
     Route: 048
     Dates: start: 20201029, end: 20201209
  4. METOPROLOL SUCCINATE [Concomitant]
     Active Substance: METOPROLOL SUCCINATE
     Indication: Hypertension
     Route: 048
     Dates: start: 20201029, end: 20201209
  5. ADALAT [Concomitant]
     Active Substance: NIFEDIPINE
     Indication: Hypertension
     Route: 048
     Dates: start: 20201029, end: 20201209
  6. BENZBROMARONE [Concomitant]
     Active Substance: BENZBROMARONE
     Indication: Gout
     Route: 048
     Dates: start: 20201029, end: 20201209

REACTIONS (5)
  - Pancreatitis acute [Recovering/Resolving]
  - Cholecystitis acute [Unknown]
  - Splenic calcification [Unknown]
  - Aortic arteriosclerosis [Unknown]
  - Condition aggravated [Unknown]

NARRATIVE: CASE EVENT DATE: 20201209
